FAERS Safety Report 14128465 (Version 2)
Quarter: 2017Q4

REPORT INFORMATION
  Report Type: Spontaneous
  Country: NL (occurrence: NL)
  Receive Date: 20171026
  Receipt Date: 20171031
  Transmission Date: 20180321
  Serious: Yes (Hospitalization)
  Sender: FDA-Public Use
  Company Number: NL-SA-2017SA202621

PATIENT
  Age: 30 Year
  Sex: Male
  Weight: 123 kg

DRUGS (10)
  1. PREGABALIN. [Concomitant]
     Active Substance: PREGABALIN
     Route: 048
  2. LEVOCETRIZINE [Concomitant]
     Active Substance: LEVOCETIRIZINE
  3. VALSARTAN. [Concomitant]
     Active Substance: VALSARTAN
     Route: 048
  4. SPIRONOLACTONE. [Concomitant]
     Active Substance: SPIRONOLACTONE
     Route: 048
  5. FABRAZYME [Suspect]
     Active Substance: AGALSIDASE BETA
     Indication: FABRY^S DISEASE
     Route: 041
     Dates: start: 2013
  6. SIMVASTATIN. [Concomitant]
     Active Substance: SIMVASTATIN
  7. FUROSEMIDE. [Concomitant]
     Active Substance: FUROSEMIDE
     Route: 048
  8. COLECALCIFEROL [Concomitant]
     Active Substance: CHOLECALCIFEROL
     Route: 048
  9. DEXAMETHASONE. [Concomitant]
     Active Substance: DEXAMETHASONE
     Indication: INFUSION RELATED REACTION
     Route: 042
  10. VENLAFAXINE [Concomitant]
     Active Substance: VENLAFAXINE HYDROCHLORIDE
     Route: 048

REACTIONS (9)
  - Malaise [Unknown]
  - Diarrhoea [Recovered/Resolved]
  - Pyrexia [Recovered/Resolved]
  - Respiratory rate increased [Recovered/Resolved]
  - C-reactive protein increased [Unknown]
  - Chills [Recovered/Resolved]
  - Blood pressure increased [Recovered/Resolved]
  - Tachycardia [Recovered/Resolved]
  - Bacterial infection [Unknown]

NARRATIVE: CASE EVENT DATE: 201710
